FAERS Safety Report 8020278-5 (Version None)
Quarter: 2012Q1

REPORT INFORMATION
  Report Type: 
  Country: None (occurrence: None)
  Receive Date: 20120103
  Receipt Date: 20111229
  Transmission Date: 20120608
  Serious: Yes (Other)
  Sender: FDA-Public Use
  Company Number: SG-BAYER-2011-124344

PATIENT
  Age: 72 Year
  Sex: Female

DRUGS (1)
  1. ACARBOSE [Suspect]

REACTIONS (1)
  - PRURITUS [None]
